FAERS Safety Report 6698647-5 (Version None)
Quarter: 2010Q2

REPORT INFORMATION
  Report Type: 
  Country: None (occurrence: None)
  Receive Date: 20100427
  Receipt Date: 20100415
  Transmission Date: 20101027
  Serious: Yes (Other)
  Sender: FDA-Public Use
  Company Number: US-PFIZER INC-2010048531

PATIENT
  Sex: Female
  Weight: 63.492 kg

DRUGS (3)
  1. CORTEF [Suspect]
     Indication: ADRENAL INSUFFICIENCY
     Dosage: UNK
     Route: 048
     Dates: start: 19870222
  2. PREDNISONE [Suspect]
     Indication: ADRENAL INSUFFICIENCY
  3. FLUDROCORTISONE [Concomitant]
     Dosage: 0.5 MG, UNK

REACTIONS (2)
  - BLOOD CHOLESTEROL INCREASED [None]
  - MEMORY IMPAIRMENT [None]
